FAERS Safety Report 8047405 (Version 5)
Quarter: 2013Q2

REPORT INFORMATION
  Report Type: Spontaneous
  Country: US (occurrence: US)
  Receive Date: 20110721
  Receipt Date: 20130416
  Transmission Date: 20140414
  Serious: Yes (Other)
  Sender: FDA-Public Use
  Company Number: US-ROCHE-772975

PATIENT
  Age: 15 Year
  Sex: Male
  Weight: 53.1 kg

DRUGS (2)
  1. ACCUTANE [Suspect]
     Indication: ACNE
     Route: 065
     Dates: start: 19990426, end: 199909
  2. CEPHALEXIN [Concomitant]

REACTIONS (13)
  - Colitis ulcerative [Unknown]
  - Depression [Unknown]
  - Emotional distress [Not Recovered/Not Resolved]
  - Inflammatory bowel disease [Unknown]
  - Panic attack [Unknown]
  - Cholangitis sclerosing [Unknown]
  - Paronychia [Unknown]
  - Dry skin [Unknown]
  - Mucosal dryness [Unknown]
  - Aspartate aminotransferase increased [Unknown]
  - Alanine aminotransferase increased [Unknown]
  - Red blood cell sedimentation rate increased [Recovered/Resolved]
  - Blood alkaline phosphatase increased [Recovered/Resolved]
